FAERS Safety Report 5100577-7 (Version None)
Quarter: 2006Q3

REPORT INFORMATION
  Report Type: 
  Country: None (occurrence: None)
  Receive Date: 20060909
  Receipt Date: 20060817
  Transmission Date: 20061208
  Serious: Yes (Hospitalization, Other)
  Sender: FDA-Public Use
  Company Number: US-ABBOTT-06P-163-0341064-00

PATIENT
  Sex: Female

DRUGS (5)
  1. DEPAKOTE ER [Suspect]
     Indication: BIPOLAR DISORDER
  2. DEPAKOTE ER [Suspect]
     Indication: OVERDOSE
     Dates: start: 20020101, end: 20020101
  3. LEXAPRO [Suspect]
     Indication: BIPOLAR DISORDER
     Dates: start: 20011001, end: 20060601
  4. LEXAPRO [Suspect]
     Indication: OVERDOSE
     Dates: start: 20020101, end: 20020101
  5. RISPERIDONE [Suspect]
     Indication: BIPOLAR DISORDER
     Dates: start: 20020101, end: 20060501

REACTIONS (8)
  - BENIGN BREAST NEOPLASM [None]
  - BREAST CYST [None]
  - BREAST DISCHARGE [None]
  - INTENTIONAL OVERDOSE [None]
  - INTENTIONAL SELF-INJURY [None]
  - SELF-INJURIOUS IDEATION [None]
  - SUICIDAL IDEATION [None]
  - SUICIDE ATTEMPT [None]
